FAERS Safety Report 9079181 (Version 1)
Quarter: 2013Q1

REPORT INFORMATION
  Report Type: Spontaneous
  Country: DK (occurrence: BR)
  Receive Date: 20130130
  Receipt Date: 20130130
  Transmission Date: 20140127
  Serious: Yes (Other)
  Sender: FDA-Public Use
  Company Number: BR-FRI-1000042213

PATIENT
  Sex: Female
  Weight: 56 kg

DRUGS (5)
  1. LEXAPRO [Suspect]
     Dosage: 5 MG
     Route: 048
     Dates: start: 201212, end: 20130103
  2. LEXAPRO [Suspect]
     Dosage: 10 MG
     Route: 048
     Dates: start: 20130104
  3. EFEXOR XR [Concomitant]
     Dosage: 75 MG
     Route: 048
     Dates: start: 200512, end: 201212
  4. STILNOX [Concomitant]
     Indication: INSOMNIA
     Dates: start: 201209
  5. RIVOTRIL [Concomitant]
     Indication: ANXIETY
     Route: 048
     Dates: start: 200512

REACTIONS (9)
  - Asphyxia [Recovered/Resolved]
  - Suicidal ideation [Recovered/Resolved]
  - Chest pain [Recovered/Resolved]
  - Tachycardia [Recovered/Resolved]
  - Feeling abnormal [Recovered/Resolved]
  - Dyspnoea [Recovered/Resolved]
  - Confusional state [Recovered/Resolved]
  - Panic attack [Recovering/Resolving]
  - Mania [Recovering/Resolving]
